FAERS Safety Report 14935778 (Version 2)
Quarter: 2020Q2

REPORT INFORMATION
  Report Type: Report from Study
  Country: US (occurrence: US)
  Receive Date: 20180524
  Receipt Date: 20200511
  Transmission Date: 20200713
  Serious: Yes (Hospitalization, Other)
  Sender: FDA-Public Use
  Company Number: US-ACTELION-A-NJ2017-151986

PATIENT
  Age: 60 Year
  Sex: Female

DRUGS (1)
  1. OPSUMIT [Suspect]
     Active Substance: MACITENTAN
     Indication: PULMONARY ARTERIAL HYPERTENSION
     Dosage: UNK
     Route: 048
     Dates: start: 20160907

REACTIONS (11)
  - Cholecystectomy [Recovered/Resolved]
  - Alanine aminotransferase increased [Unknown]
  - Cholelithiasis [Recovered/Resolved]
  - Liver function test increased [Unknown]
  - Hepatic cirrhosis [Not Recovered/Not Resolved]
  - Gastritis [Unknown]
  - Blood alkaline phosphatase increased [Unknown]
  - Varices oesophageal [Not Recovered/Not Resolved]
  - Cholecystitis acute [Recovered/Resolved]
  - Gallbladder disorder [Recovered/Resolved]
  - Aspartate aminotransferase increased [Unknown]

NARRATIVE: CASE EVENT DATE: 20170216
